FAERS Safety Report 8587083-2 (Version None)
Quarter: 2012Q3

REPORT INFORMATION
  Report Type: 
  Country: None (occurrence: None)
  Receive Date: 20120810
  Receipt Date: 20120801
  Transmission Date: 20120928
  Serious: Yes (Life-Threatening, Hospitalization)
  Sender: FDA-Public Use
  Company Number: US-ROCHE-1057366

PATIENT
  Sex: Female
  Weight: 77.18 kg

DRUGS (4)
  1. HYDROCORTISONE [Concomitant]
     Route: 048
  2. FLUDROCORTISONE ACETATE [Concomitant]
     Indication: ADRENAL INSUFFICIENCY
     Route: 048
  3. HYDROCORTISONE [Concomitant]
     Indication: ADRENAL INSUFFICIENCY
     Route: 048
  4. ZELBORAF [Suspect]
     Indication: MALIGNANT MELANOMA
     Route: 048
     Dates: start: 20120313, end: 20120409

REACTIONS (10)
  - HICCUPS [None]
  - BLISTER [None]
  - DIARRHOEA [None]
  - ADRENOCORTICAL INSUFFICIENCY ACUTE [None]
  - DECREASED APPETITE [None]
  - SUNBURN [None]
  - BLOOD CORTISOL DECREASED [None]
  - MYALGIA [None]
  - FATIGUE [None]
  - ARTHRALGIA [None]
